FAERS Safety Report 7897443-0 (Version None)
Quarter: 2011Q4

REPORT INFORMATION
  Report Type: 
  Country: None (occurrence: None)
  Receive Date: 20111028
  Receipt Date: 20110620
  Transmission Date: 20120403
  Serious: Yes (Other)
  Sender: FDA-Public Use
  Company Number: PHHY2011US55973

PATIENT
  Sex: Female

DRUGS (2)
  1. TRILEPTAL [Suspect]
     Dosage: 5 ML, TID
  2. ANTIBIOTICS (NO INGREDIENTS/SUBSTANCES) [Concomitant]

REACTIONS (6)
  - CONVULSION [None]
  - VISUAL IMPAIRMENT [None]
  - GAIT DISTURBANCE [None]
  - COORDINATION ABNORMAL [None]
  - ABDOMINAL DISCOMFORT [None]
  - SPEECH DISORDER DEVELOPMENTAL [None]
